FAERS Safety Report 14379576 (Version 1)
Quarter: 2018Q1

REPORT INFORMATION
  Report Type: Spontaneous
  Country: GB (occurrence: GB)
  Receive Date: 20180112
  Receipt Date: 20180112
  Transmission Date: 20180509
  Serious: Yes (Disabling, Other)
  Sender: FDA-Public Use
  Company Number: GB-SUN PHARMACEUTICAL INDUSTRIES LTD-2018R1-160013

PATIENT
  Age: 48 Year
  Sex: Male
  Weight: 96 kg

DRUGS (5)
  1. TRAMADOL. [Concomitant]
     Active Substance: TRAMADOL
     Dosage: UNK
  2. TERBINAFINE. [Suspect]
     Active Substance: TERBINAFINE
     Indication: NAIL INFECTION
     Dosage: CAN^T REMEMBER BUT DOCTOR WOULD. ()
     Route: 048
     Dates: start: 20170615, end: 20170715
  3. PROCYCLIDINE [Concomitant]
     Active Substance: PROCYCLIDINE
     Dosage: UNK
  4. RISPERIDONE. [Suspect]
     Active Substance: RISPERIDONE
     Indication: PRODUCT USED FOR UNKNOWN INDICATION
     Dosage: 25 MG,  STARTED 6.5 YEARS AGO
     Dates: start: 2011
  5. FENTANYL. [Concomitant]
     Active Substance: FENTANYL

REACTIONS (2)
  - Labelled drug-drug interaction medication error [Unknown]
  - Jaw disorder [Recovering/Resolving]

NARRATIVE: CASE EVENT DATE: 20170630
